FAERS Safety Report 9268641 (Version 4)
Quarter: 2015Q3

REPORT INFORMATION
  Report Type: Report from Study
  Country: US (occurrence: US)
  Receive Date: 20130502
  Receipt Date: 20150721
  Transmission Date: 20151125
  Serious: Yes (Other)
  Sender: FDA-Public Use
  Company Number: US-ALEXION-A201300527

PATIENT

DRUGS (1)
  1. SOLIRIS [Suspect]
     Active Substance: ECULIZUMAB
     Indication: PAROXYSMAL NOCTURNAL HAEMOGLOBINURIA
     Dosage: 1200 MG, Q2W
     Route: 042

REACTIONS (12)
  - Back pain [Unknown]
  - Haptoglobin decreased [Unknown]
  - Blood lactate dehydrogenase increased [Unknown]
  - Haemoglobinuria [Unknown]
  - Malaise [Unknown]
  - Pancytopenia [Unknown]
  - Jaundice [Unknown]
  - Drug ineffective [Unknown]
  - Abdominal pain [Unknown]
  - Chromaturia [Unknown]
  - Fatigue [Unknown]
  - Haemolysis [Not Recovered/Not Resolved]
